FAERS Safety Report 10143946 (Version 4)
Quarter: 2014Q2

REPORT INFORMATION
  Report Type: Other
  Country: GB (occurrence: GB)
  Receive Date: 20140430
  Receipt Date: 20140626
  Transmission Date: 20141212
  Serious: Yes (Hospitalization)
  Sender: FDA-Public Use
  Company Number: GB-PERRIGO-14GB004387

PATIENT
  Age: 59 Year
  Sex: Male
  Weight: 80 kg

DRUGS (26)
  1. DEXSOL 0.4MG/ML PL00427/0137 [Suspect]
     Indication: PLASMA CELL MYELOMA
     Dosage: 40 MG, QD
     Route: 048
     Dates: start: 20120901, end: 20140331
  2. REVLIMID [Suspect]
     Indication: PLASMA CELL MYELOMA
     Dosage: 25 MILLIGRAM
     Route: 048
     Dates: start: 20120901, end: 20140331
  3. ACICLOVIR [Concomitant]
     Indication: ADVERSE EVENT
     Dosage: UNK
     Route: 065
     Dates: start: 20120901
  4. ACICLOVIR [Concomitant]
     Indication: ADVERSE EVENT
     Dosage: UNK
     Route: 065
     Dates: start: 20140402
  5. ASPIRINE [Concomitant]
     Indication: THROMBOSIS PROPHYLAXIS
     Dosage: 75 MILLIGRAM
     Route: 048
     Dates: start: 20130705
  6. AUGMENTIN [Concomitant]
     Indication: UPPER RESPIRATORY TRACT INFECTION
     Dosage: 1875 MILLIGRAM
     Route: 048
     Dates: start: 20140328
  7. AUGMENTIN [Concomitant]
     Indication: ADVERSE EVENT
     Dosage: UNK
     Route: 065
     Dates: start: 20130104
  8. CO-AMOXICLAV [Concomitant]
     Indication: RESPIRATORY SYNCYTIAL VIRUS INFECTION
     Dosage: 1875 MILLIGRAM
     Route: 065
     Dates: start: 20140107
  9. CO-AMOXICLAV [Concomitant]
     Indication: ADVERSE EVENT
     Dosage: UNK
     Route: 065
     Dates: start: 20140402
  10. CO-CODAMOL [Concomitant]
     Indication: PRODUCT USED FOR UNKNOWN INDICATION
     Dosage: UNK
     Route: 065
     Dates: start: 20111012
  11. CO-TRIMOXAZOLE [Concomitant]
     Indication: PRODUCT USED FOR UNKNOWN INDICATION
     Dosage: UNK
     Route: 065
     Dates: start: 20120831
  12. DALTEPARIN [Concomitant]
     Indication: PRODUCT USED FOR UNKNOWN INDICATION
     Dosage: UNK
     Route: 065
     Dates: start: 20120901
  13. DOXYCYCLINE [Concomitant]
     Indication: LOWER RESPIRATORY TRACT INFECTION
     Dosage: 100 MILLIGRAM
     Route: 048
     Dates: start: 20130305, end: 20130313
  14. FLUCONAZOLE [Concomitant]
     Indication: PRODUCT USED FOR UNKNOWN INDICATION
     Dosage: UNK
     Route: 065
     Dates: start: 20120901
  15. GRANULOCYTE COLONY-STIMULATING FACTOR NOS [Concomitant]
     Indication: PROPHYLAXIS
     Dosage: 57 MILLIGRAM
     Route: 058
     Dates: start: 20130618
  16. MEROPENEM [Concomitant]
     Indication: PRODUCT USED FOR UNKNOWN INDICATION
     Dosage: UNK
     Route: 065
     Dates: start: 20130503
  17. OMEPRAZOLE [Concomitant]
     Indication: PRODUCT USED FOR UNKNOWN INDICATION
     Dosage: UNK
     Route: 065
     Dates: start: 20130517
  18. OMEPRAZOLE [Concomitant]
     Dosage: UNK
     Route: 065
     Dates: start: 20120901
  19. PARACETAMOL [Concomitant]
     Indication: PRODUCT USED FOR UNKNOWN INDICATION
     Dosage: UNK
     Route: 065
     Dates: start: 20130101
  20. PARACETAMOL [Concomitant]
     Dosage: 1 G, UNK
     Route: 048
     Dates: start: 20140315
  21. QUININE SULPHATE [Concomitant]
     Indication: PRODUCT USED FOR UNKNOWN INDICATION
     Dosage: UNK
     Route: 065
     Dates: start: 20120907
  22. RIBAVIRIN [Concomitant]
     Indication: RESPIRATORY SYNCYTIAL VIRUS INFECTION
     Dosage: 1200 MILLIGRAM
     Route: 065
     Dates: start: 20140110
  23. RIBAVIRIN [Concomitant]
     Dosage: UNK
  24. TIOCONAZOLE [Concomitant]
     Indication: NAIL INFECTION
     Dosage: TWICE DAILY
     Route: 061
     Dates: start: 20130913
  25. ZOMETA [Concomitant]
     Indication: PRODUCT USED FOR UNKNOWN INDICATION
     Dosage: UNK
     Route: 065
     Dates: start: 201109
  26. ZOPICLONE [Concomitant]
     Indication: PRODUCT USED FOR UNKNOWN INDICATION
     Dosage: UNK
     Route: 065
     Dates: start: 20120904

REACTIONS (2)
  - Febrile neutropenia [Recovered/Resolved]
  - Erythema infectiosum [Recovered/Resolved]
